FAERS Safety Report 9714455 (Version 1)
Quarter: 2013Q4

REPORT INFORMATION
  Report Type: Spontaneous
  Country: US (occurrence: US)
  Receive Date: 20131126
  Receipt Date: 20131126
  Transmission Date: 20140711
  Serious: No
  Sender: FDA-Public Use
  Company Number: US-GILEAD-2008-0018735

PATIENT
  Age: 65 Year
  Sex: Female

DRUGS (10)
  1. LETAIRIS [Suspect]
     Indication: PULMONARY ARTERIAL HYPERTENSION
     Route: 048
     Dates: start: 20070511, end: 200808
  2. LETAIRIS [Suspect]
     Route: 048
     Dates: start: 200808
  3. LANTUS [Concomitant]
  4. METOPROLOL ER [Concomitant]
  5. ADVAIR [Concomitant]
  6. REVATIO [Concomitant]
  7. DIGOXIN [Concomitant]
  8. AMARYL [Concomitant]
  9. HUMALOG [Concomitant]
  10. ALBUTEROL [Concomitant]

REACTIONS (1)
  - Nasal congestion [Unknown]
